FAERS Safety Report 5302976-7 (Version None)
Quarter: 2007Q2

REPORT INFORMATION
  Report Type: 
  Country: None (occurrence: None)
  Receive Date: 20070417
  Receipt Date: 20070417
  Transmission Date: 20071010
  Serious: No
  Sender: FDA-Public Use
  Company Number: None

PATIENT
  Age: 54 Year
  Sex: Female
  Weight: 68.0396 kg

DRUGS (1)
  1. ZELNORM [Suspect]
     Indication: GASTROINTESTINAL DISORDER
     Dosage: 6MG 3 TIMES A DAY ORALLY 2MG TWICE DAILY ORALLY
     Route: 048
     Dates: start: 20060101, end: 20070325

REACTIONS (4)
  - CONDITION AGGRAVATED [None]
  - DIZZINESS [None]
  - GASTROINTESTINAL DISORDER [None]
  - SYNCOPE [None]
